FAERS Safety Report 4784008-2 (Version None)
Quarter: 2005Q3

REPORT INFORMATION
  Report Type: 
  Country: None (occurrence: None)
  Receive Date: 20050927
  Receipt Date: 20050815
  Transmission Date: 20060218
  Serious: No
  Sender: FDA-Public Use
  Company Number: SP00481

PATIENT
  Sex: Male

DRUGS (3)
  1. XIFAXAN [Suspect]
  2. CAPTOPRIL [Suspect]
  3. PREVACID [Concomitant]

REACTIONS (1)
  - PANCYTOPENIA [None]
